FAERS Safety Report 19175245 (Version 1)
Quarter: 2021Q2

REPORT INFORMATION
  Report Type: Spontaneous
  Country: JP (occurrence: JP)
  Receive Date: 20210423
  Receipt Date: 20210423
  Transmission Date: 20210717
  Serious: Yes (Other)
  Sender: FDA-Public Use
  Company Number: JP-PFIZER INC-2020124672

PATIENT
  Age: 70 Year
  Sex: Female
  Weight: 56 kg

DRUGS (9)
  1. MAGNESIUM OXIDE. [Concomitant]
     Active Substance: MAGNESIUM OXIDE
  2. REBAMIPIDE [Concomitant]
     Active Substance: REBAMIPIDE
  3. GRANISETRON [Concomitant]
     Active Substance: GRANISETRON
  4. AMLODIPINE [Concomitant]
     Active Substance: AMLODIPINE BESYLATE
  5. NORMAL SALINE [Concomitant]
     Active Substance: SODIUM CHLORIDE
  6. LOXOPROFEN NA [Concomitant]
     Active Substance: LOXOPROFEN SODIUM
  7. GEMCITABINE. [Concomitant]
     Active Substance: GEMCITABINE
  8. DOCETAXEL 20MG/2ML HOSPIRA [Suspect]
     Active Substance: DOCETAXEL
     Indication: UTERINE LEIOMYOMA
     Dosage: 110 MG, 1X/DAY
     Route: 041
     Dates: start: 20200207
  9. DEXART [Concomitant]
     Active Substance: DEXAMETHASONE SODIUM PHOSPHATE

REACTIONS (5)
  - Internal haemorrhage [Unknown]
  - Pruritus [Recovering/Resolving]
  - Infusion site inflammation [Recovering/Resolving]
  - Pigmentation disorder [Not Recovered/Not Resolved]
  - Phlebitis [Recovering/Resolving]

NARRATIVE: CASE EVENT DATE: 20200229
